FAERS Safety Report 7503139-7 (Version None)
Quarter: 2011Q2

REPORT INFORMATION
  Report Type: 
  Country: None (occurrence: None)
  Receive Date: 20110525
  Receipt Date: 20110516
  Transmission Date: 20111010
  Serious: Yes (Hospitalization)
  Sender: FDA-Public Use
  Company Number: NL-ASTRAZENECA-2011SE02494

PATIENT
  Age: 41 Year
  Sex: Female

DRUGS (3)
  1. ZOLADEX [Suspect]
     Route: 058
     Dates: start: 20091101
  2. NERATINIB CODE NOT BROKEN [Suspect]
     Indication: BREAST CANCER
     Dosage: DAILY
     Route: 048
     Dates: start: 20100904, end: 20110201
  3. TAMOXIFEN CITRATE [Concomitant]
     Route: 048

REACTIONS (1)
  - SARCOMA UTERUS [None]
